FAERS Safety Report 24044976 (Version 3)
Quarter: 2024Q3

REPORT INFORMATION
  Report Type: Spontaneous
  Country: US (occurrence: US)
  Receive Date: 20240703
  Receipt Date: 20240727
  Transmission Date: 20241016
  Serious: Yes (Death, Life-Threatening, Hospitalization)
  Sender: XELLIA PHARMACEUTICALS
  Company Number: US-MLMSERVICE-20240613-PI097334-00329-1

PATIENT
  Age: 69 Year
  Sex: Female
  Weight: 150.59 kg

DRUGS (7)
  1. VANCOMYCIN [Suspect]
     Active Substance: VANCOMYCIN
     Indication: Pseudomonas infection
     Dosage: 2000MG IV (LOADING DOSE)
  2. AZTREONAM [Concomitant]
     Active Substance: AZTREONAM
     Indication: Pseudomonas infection
  3. METRONIDAZOLE [Concomitant]
     Active Substance: METRONIDAZOLE
     Indication: Pseudomonas infection
  4. DOXYCYCLINE [Concomitant]
     Active Substance: DOXYCYCLINE\DOXYCYCLINE HYCLATE
     Indication: Pseudomonas infection
  5. BEBTELOVIMAB [Concomitant]
     Active Substance: BEBTELOVIMAB
     Indication: COVID-19
  6. VANCOMYCIN [Suspect]
     Active Substance: VANCOMYCIN
     Indication: Pseudomonas infection
     Dosage: 1500MG IV Q24 HOURS
  7. VANCOMYCIN [Suspect]
     Active Substance: VANCOMYCIN
     Indication: Pseudomonas infection
     Dosage: DOSES WERE ADJUSTED AS PER THE BAYESIAN DOSING SOFTWARE

REACTIONS (4)
  - Laboratory test interference [Fatal]
  - False positive investigation result [Fatal]
  - Treatment failure [Fatal]
  - Sepsis [Fatal]
